FAERS Safety Report 10257969 (Version 1)
Quarter: 2014Q2

REPORT INFORMATION
  Report Type: Spontaneous
  Country: US (occurrence: US)
  Receive Date: 20140625
  Receipt Date: 20140625
  Transmission Date: 20141212
  Serious: No
  Sender: FDA-Public Use
  Company Number: US-BAYER-2014-095134

PATIENT
  Age: 70 Year
  Sex: Male

DRUGS (2)
  1. ALEVE CAPLET [Suspect]
     Indication: BACK PAIN
     Dosage: 1-2 DF, BID
     Route: 048
     Dates: start: 201406
  2. ALEVE CAPLET [Suspect]
     Indication: ARTHRALGIA

REACTIONS (2)
  - Drug ineffective [None]
  - Drug ineffective [None]
